FAERS Safety Report 14108714 (Version 3)
Quarter: 2018Q2

REPORT INFORMATION
  Report Type: Not Available
  Country: US (occurrence: US)
  Receive Date: 20171019
  Receipt Date: 20180419
  Transmission Date: 20180711
  Serious: No
  Sender: FDA-Public Use
  Company Number: US-NEUROCRINE BIOSCIENCES INC.-2017NBI00827

PATIENT
  Sex: Female
  Weight: 45.4 kg

DRUGS (2)
  1. INGREZZA [Suspect]
     Active Substance: VALBENAZINE
     Indication: TARDIVE DYSKINESIA
     Route: 048
     Dates: start: 20170713, end: 20170719
  2. INGREZZA [Suspect]
     Active Substance: VALBENAZINE
     Indication: CHOREA
     Route: 048
     Dates: start: 20170720

REACTIONS (6)
  - Somnolence [Recovered/Resolved]
  - Drug effect decreased [None]
  - Decreased appetite [Recovered/Resolved]
  - Dizziness [Recovered/Resolved]
  - Nausea [Recovered/Resolved]
  - Cold sweat [Recovered/Resolved]

NARRATIVE: CASE EVENT DATE: 2017
